FAERS Safety Report 4689598-6 (Version None)
Quarter: 2005Q2

REPORT INFORMATION
  Report Type: 
  Country: None (occurrence: None)
  Receive Date: 20050608
  Receipt Date: 20050405
  Transmission Date: 20051028
  Serious: No
  Sender: FDA-Public Use
  Company Number: 2005-BP-05593BP

PATIENT
  Age: 88 Year
  Sex: Female
  Weight: 47.72 kg

DRUGS (4)
  1. SPIRIVA [Suspect]
     Dosage: (18 MCG), NR
     Dates: start: 20050101, end: 20050103
  2. ZOCOR [Concomitant]
  3. SYNTHROID [Concomitant]
  4. ATIVAN [Concomitant]

REACTIONS (1)
  - SYNCOPE [None]
